FAERS Safety Report 19186079 (Version 3)
Quarter: 2021Q2

REPORT INFORMATION
  Report Type: Report from Study
  Country: None (occurrence: US)
  Receive Date: 20210427
  Receipt Date: 20210527
  Transmission Date: 20210717
  Serious: Yes (Hospitalization)
  Sender: FDA-Public Use
  Company Number: US-ABBVIE-21K-163-3844902-00

PATIENT
  Age: 60 Year
  Sex: Female
  Weight: 79.9 kg

DRUGS (12)
  1. SKYRIZI [Suspect]
     Active Substance: RISANKIZUMAB-RZAA
     Indication: PSORIASIS
     Route: 058
     Dates: start: 202009
  2. LASIX [Concomitant]
     Active Substance: FUROSEMIDE
     Indication: PRODUCT USED FOR UNKNOWN INDICATION
  3. SPIRONOLACTONE. [Concomitant]
     Active Substance: SPIRONOLACTONE
     Indication: FLUID RETENTION
  4. MIDODRINE [Concomitant]
     Active Substance: MIDODRINE
     Indication: HYPOTENSION
  5. MODERNA COVID?19 VACCINE [Concomitant]
     Active Substance: CX-024414
     Dosage: MODERNA
     Route: 030
     Dates: start: 20210419, end: 20210419
  6. MODERNA COVID?19 VACCINE [Concomitant]
     Active Substance: CX-024414
     Indication: COVID-19 IMMUNISATION
     Dosage: MODERNA
     Route: 030
     Dates: start: 20210322, end: 20210322
  7. RECLAST [Concomitant]
     Active Substance: ZOLEDRONIC ACID
     Indication: OSTEOPOROSIS
  8. VITAMIN D3 [Concomitant]
     Active Substance: CHOLECALCIFEROL
     Indication: OSTEOPOROSIS
  9. BUMETANIDE. [Concomitant]
     Active Substance: BUMETANIDE
     Indication: FLUID RETENTION
  10. POTASSIUM [Concomitant]
     Active Substance: POTASSIUM
     Indication: BLOOD POTASSIUM DECREASED
  11. LIPITOR [Concomitant]
     Active Substance: ATORVASTATIN CALCIUM
     Indication: BLOOD CHOLESTEROL INCREASED
  12. BABY ASPIRIN [Concomitant]
     Active Substance: ASPIRIN
     Indication: ANTICOAGULANT THERAPY

REACTIONS (7)
  - Hypotension [Recovered/Resolved]
  - Weight decreased [Recovered/Resolved]
  - Fluid retention [Recovered/Resolved]
  - Malaise [Recovered/Resolved]
  - Cardiac dysfunction [Recovered/Resolved]
  - Psoriasis [Recovering/Resolving]
  - Weight increased [Recovering/Resolving]

NARRATIVE: CASE EVENT DATE: 202103
